FAERS Safety Report 16779739 (Version 1)
Quarter: 2019Q3

REPORT INFORMATION
  Report Type: Spontaneous
  Country: ES (occurrence: ES)
  Receive Date: 20190906
  Receipt Date: 20190906
  Transmission Date: 20191005
  Serious: Yes (Other)
  Sender: FDA-Public Use
  Company Number: ES-TEVA-2019-ES-1102488

PATIENT
  Age: 72 Year
  Sex: Male

DRUGS (2)
  1. FUROSEMIDA (1615A) [Concomitant]
     Active Substance: FUROSEMIDE
     Indication: HYPERTENSION
     Dosage: 20MG EVERY 8 HOURS
     Route: 042
     Dates: start: 20190116, end: 20190117
  2. ATORVASTATINA (7400A) [Suspect]
     Active Substance: ATORVASTATIN
     Indication: HYPERCHOLESTEROLAEMIA
     Dosage: 80MG EVERY 24 HOURS
     Route: 048
     Dates: start: 2015, end: 20190117

REACTIONS (1)
  - Hepatitis acute [Recovered/Resolved]

NARRATIVE: CASE EVENT DATE: 20190116
